FAERS Safety Report 9864966 (Version 1)
Quarter: 2014Q1

REPORT INFORMATION
  Report Type: Spontaneous
  Country: US (occurrence: US)
  Receive Date: 20140203
  Receipt Date: 20140203
  Transmission Date: 20141002
  Serious: No
  Sender: FDA-Public Use
  Company Number: US-GILEAD-2014-0093545

PATIENT
  Sex: Female

DRUGS (1)
  1. LETAIRIS [Suspect]
     Indication: PRODUCT USED FOR UNKNOWN INDICATION
     Route: 065
     Dates: end: 20130312

REACTIONS (5)
  - Abdominal distension [Recovering/Resolving]
  - Insomnia [Recovering/Resolving]
  - Discomfort [Recovering/Resolving]
  - Dry skin [Recovering/Resolving]
  - Fluid retention [Recovering/Resolving]
